FAERS Safety Report 7309506-9 (Version None)
Quarter: 2011Q1

REPORT INFORMATION
  Report Type: 
  Country: None (occurrence: None)
  Receive Date: 20110223
  Receipt Date: 20110216
  Transmission Date: 20110831
  Serious: Yes (Other)
  Sender: FDA-Public Use
  Company Number: GB-GILEAD-2011-0036638

PATIENT
  Sex: Female

DRUGS (2)
  1. EFAVIRENZ [Concomitant]
     Dates: start: 20110214
  2. TRUVADA [Suspect]
     Indication: HIV INFECTION
     Dates: start: 20110214

REACTIONS (4)
  - NERVOUS SYSTEM DISORDER [None]
  - TERMINAL INSOMNIA [None]
  - CONFUSIONAL STATE [None]
  - PSYCHOTIC DISORDER [None]
